FAERS Safety Report 24955086 (Version 1)
Quarter: 2025Q1

REPORT INFORMATION
  Report Type: Spontaneous
  Country: US (occurrence: US)
  Receive Date: 20250211
  Receipt Date: 20250211
  Transmission Date: 20250408
  Serious: No
  Sender: PFIZER
  Company Number: US-PFIZER INC-202500028661

PATIENT
  Age: 79 Year
  Sex: Male

DRUGS (9)
  1. INLYTA [Suspect]
     Active Substance: AXITINIB
     Indication: Renal cell carcinoma
     Dosage: 5 MG, 2X/DAY
     Dates: start: 20250123
  2. COLACE [Concomitant]
     Active Substance: DOCUSATE SODIUM
  3. EFFEXOR [Concomitant]
     Active Substance: VENLAFAXINE HYDROCHLORIDE
  4. KEYTRUDA [Concomitant]
     Active Substance: PEMBROLIZUMAB
  5. LANTUS [Concomitant]
     Active Substance: INSULIN GLARGINE
  6. LIPITOR [Concomitant]
     Active Substance: ATORVASTATIN CALCIUM
  7. NOVOLOG [Concomitant]
     Active Substance: INSULIN ASPART
  8. PREDNISONE [Concomitant]
     Active Substance: PREDNISONE
  9. ZYPREXA [Concomitant]
     Active Substance: OLANZAPINE

REACTIONS (1)
  - Fatigue [Not Recovered/Not Resolved]
